FAERS Safety Report 6568367-6 (Version None)
Quarter: 2010Q1

REPORT INFORMATION
  Report Type: 
  Country: None (occurrence: None)
  Receive Date: 20100203
  Receipt Date: 20100125
  Transmission Date: 20100710
  Serious: Yes (Hospitalization)
  Sender: FDA-Public Use
  Company Number: B0630547A

PATIENT
  Age: 45 Year
  Sex: Female

DRUGS (6)
  1. ORLISTAT [Suspect]
     Indication: OBESITY
     Route: 065
  2. ETHANOL [Suspect]
     Route: 048
  3. THIAMINE [Concomitant]
     Route: 065
  4. VITAMIN B COMPLEX CAP [Concomitant]
     Route: 048
  5. VENLAFAXINE [Concomitant]
     Route: 065
  6. LEVOMEPROMAZINE [Concomitant]
     Route: 065

REACTIONS (11)
  - ABDOMINAL PAIN UPPER [None]
  - ABDOMINAL TENDERNESS [None]
  - ALANINE AMINOTRANSFERASE INCREASED [None]
  - ASPARTATE AMINOTRANSFERASE INCREASED [None]
  - BLOOD AMYLASE INCREASED [None]
  - BLOOD GLUCOSE INCREASED [None]
  - C-REACTIVE PROTEIN INCREASED [None]
  - NAUSEA [None]
  - PANCREATIC ENZYMES INCREASED [None]
  - PANCREATITIS ACUTE [None]
  - WHITE BLOOD CELL COUNT INCREASED [None]
